FAERS Safety Report 4704203-8 (Version None)
Quarter: 2005Q2

REPORT INFORMATION
  Report Type: 
  Country: None (occurrence: None)
  Receive Date: 20050628
  Receipt Date: 20050617
  Transmission Date: 20051028
  Serious: Yes (Other)
  Sender: FDA-Public Use
  Company Number: 2005089963

PATIENT
  Age: 77 Year
  Sex: Female

DRUGS (1)
  1. MACUGEN [Suspect]
     Indication: MACULAR DEGENERATION
     Dosage: INTRAVENOUS
     Route: 042
     Dates: start: 20050101

REACTIONS (2)
  - HYPHAEMA [None]
  - PHARMACEUTICAL PRODUCT COMPLAINT [None]
